FAERS Safety Report 6135837-4 (Version None)
Quarter: 2009Q1

REPORT INFORMATION
  Report Type: 
  Country: None (occurrence: None)
  Receive Date: 20090327
  Receipt Date: 20090319
  Transmission Date: 20090719
  Serious: Yes (Other)
  Sender: FDA-Public Use
  Company Number: US-GENENTECH-277210

PATIENT
  Sex: Male

DRUGS (2)
  1. RITUXAN [Suspect]
     Indication: DRUG USE FOR UNKNOWN INDICATION
  2. FLUDARABINE PHOSPHATE [Concomitant]
     Indication: NON-HODGKIN'S LYMPHOMA

REACTIONS (1)
  - HEPATITIS B [None]
